FAERS Safety Report 19218910 (Version 1)
Quarter: 2021Q2

REPORT INFORMATION
  Report Type: Spontaneous
  Country: RU (occurrence: RU)
  Receive Date: 20210505
  Receipt Date: 20210505
  Transmission Date: 20210717
  Serious: Yes (Other)
  Sender: FDA-Public Use
  Company Number: RU-ORGANON-O2104RUS002576

PATIENT
  Age: 32 Year
  Sex: Female

DRUGS (1)
  1. NUVARING [Suspect]
     Active Substance: ETHINYL ESTRADIOL\ETONOGESTREL
     Dosage: 1 VAGINAL RING
     Route: 067
     Dates: start: 202101

REACTIONS (2)
  - Unintended pregnancy [Not Recovered/Not Resolved]
  - Pregnancy on contraceptive [Not Recovered/Not Resolved]
